FAERS Safety Report 12081659 (Version 1)
Quarter: 2016Q1

REPORT INFORMATION
  Report Type: Spontaneous
  Country: US (occurrence: US)
  Receive Date: 20160216
  Receipt Date: 20160216
  Transmission Date: 20160526
  Serious: No
  Sender: FDA-Public Use
  Company Number: US-PERRIGO-15US002293

PATIENT
  Age: 33 Year
  Sex: Female
  Weight: 77.98 kg

DRUGS (2)
  1. IBUPROFEN. [Suspect]
     Active Substance: IBUPROFEN
     Indication: OFF LABEL USE
     Dosage: SMALL AMOUNT, SINGLE
     Route: 048
     Dates: start: 20150221, end: 20150221
  2. IBUPROFEN. [Suspect]
     Active Substance: IBUPROFEN
     Dosage: SMALL AMOUNT, SINGLE
     Route: 048
     Dates: start: 20150224, end: 20150224

REACTIONS (3)
  - Tongue pruritus [Recovered/Resolved]
  - Throat irritation [Recovered/Resolved]
  - Off label use [Recovered/Resolved]

NARRATIVE: CASE EVENT DATE: 20150221
